FAERS Safety Report 18540909 (Version 1)
Quarter: 2020Q4

REPORT INFORMATION
  Report Type: Spontaneous
  Country: US (occurrence: US)
  Receive Date: 20201124
  Receipt Date: 20201124
  Transmission Date: 20210114
  Serious: No
  Sender: FDA-Public Use
  Company Number: US-CADILA HEALTHCARE LIMITED-US-ZYDUS-051062

PATIENT

DRUGS (3)
  1. BOSENTAN 125 MG TABLETS [Suspect]
     Active Substance: BOSENTAN
     Indication: PULMONARY ARTERIAL HYPERTENSION
     Dosage: UNK, BID
     Route: 048
     Dates: start: 2019
  2. AREDS 2 VITAMIN [Concomitant]
     Indication: MACULAR DEGENERATION
     Dosage: UNK
  3. LUTEIN + [Concomitant]
     Indication: MACULAR DEGENERATION
     Dosage: UNK

REACTIONS (5)
  - Insomnia [Unknown]
  - Hypotension [Unknown]
  - Pain [Unknown]
  - Musculoskeletal discomfort [Unknown]
  - Rotator cuff repair [Unknown]

NARRATIVE: CASE EVENT DATE: 2019
